FAERS Safety Report 18180131 (Version 9)
Quarter: 2022Q2

REPORT INFORMATION
  Report Type: Other
  Country: CO (occurrence: CO)
  Receive Date: 20200821
  Receipt Date: 20220603
  Transmission Date: 20220721
  Serious: Yes (Disabling, Other)
  Sender: FDA-Public Use
  Company Number: CO-002147023-PHHY2019CO125224

PATIENT
  Age: 40 Year
  Sex: Female
  Weight: 79.8 kg

DRUGS (5)
  1. XOLAIR [Suspect]
     Active Substance: OMALIZUMAB
     Indication: Asthma
     Route: 058
     Dates: start: 20141126
  2. XOLAIR [Suspect]
     Active Substance: OMALIZUMAB
     Route: 058
  3. XOLAIR [Suspect]
     Active Substance: OMALIZUMAB
     Route: 058
     Dates: start: 20200721
  4. XOLAIR [Suspect]
     Active Substance: OMALIZUMAB
     Route: 058
  5. XOLAIR [Suspect]
     Active Substance: OMALIZUMAB
     Route: 058

REACTIONS (22)
  - Urinary tract infection [Recovered/Resolved]
  - Weight increased [Unknown]
  - Hypoaesthesia eye [Unknown]
  - Spirometry abnormal [Unknown]
  - Amnesia [Unknown]
  - Oxygen saturation decreased [Recovering/Resolving]
  - Headache [Unknown]
  - Vision blurred [Not Recovered/Not Resolved]
  - Weight decreased [Unknown]
  - Pain [Not Recovered/Not Resolved]
  - Pulmonary function test decreased [Unknown]
  - Blood iron decreased [Not Recovered/Not Resolved]
  - Treatment failure [Unknown]
  - Discouragement [Unknown]
  - Drug ineffective [Unknown]
  - COVID-19 [Unknown]
  - Illness [Unknown]
  - Serum ferritin decreased [Unknown]
  - Fatigue [Not Recovered/Not Resolved]
  - Choking [Recovering/Resolving]
  - Exophthalmos [Unknown]
  - Blindness [Unknown]

NARRATIVE: CASE EVENT DATE: 20141126
